FAERS Safety Report 8822517 (Version 1)
Quarter: 2012Q4

REPORT INFORMATION
  Report Type: 
  Country: US (occurrence: US)
  Receive Date: 20121003
  Receipt Date: 20121003
  Transmission Date: 20130627
  Serious: Yes (Other)
  Sender: FDA-Public Use
  Company Number: US-PFIZER INC-2012243172

PATIENT

DRUGS (1)
  1. LYRICA [Suspect]
     Dosage: 150 mg, 2x/day

REACTIONS (5)
  - Spinal cord disorder [Unknown]
  - Quality of life decreased [Unknown]
  - Neuralgia [Unknown]
  - Agitation [Unknown]
  - Irritability [Unknown]
